FAERS Safety Report 5893075-4 (Version None)
Quarter: 2008Q3

REPORT INFORMATION
  Report Type: 
  Country: None (occurrence: None)
  Receive Date: 20080923
  Receipt Date: 20080115
  Transmission Date: 20090109
  Serious: No
  Sender: FDA-Public Use
  Company Number: US-ASTRAZENECA-2006UW11565

PATIENT
  Age: 9976 Day
  Sex: Male
  Weight: 150 kg

DRUGS (11)
  1. SEROQUEL [Suspect]
     Indication: DEPRESSION
     Route: 048
     Dates: start: 19981101, end: 20000101
  2. SEROQUEL [Suspect]
     Indication: ANXIETY
     Route: 048
     Dates: start: 19981101, end: 20000101
  3. GEODON [Concomitant]
     Dates: start: 19990101
  4. RISPERDAL [Concomitant]
     Dates: start: 19950101
  5. ZYPREXA [Concomitant]
     Dates: start: 20010101, end: 20030101
  6. ZOLOFT [Concomitant]
     Dates: start: 19990101, end: 20000101
  7. CELEXA [Concomitant]
  8. BUSPAR [Concomitant]
  9. BENZTROPINE MESYLATE [Concomitant]
  10. LORAZEPAM [Concomitant]
  11. PAXIL [Concomitant]

REACTIONS (5)
  - BLOOD CHOLESTEROL INCREASED [None]
  - BLOOD TRIGLYCERIDES INCREASED [None]
  - HYPERTENSION [None]
  - OBESITY [None]
  - TYPE 2 DIABETES MELLITUS [None]
